FAERS Safety Report 9690971 (Version 1)
Quarter: 2013Q4

REPORT INFORMATION
  Report Type: Spontaneous
  Country: US (occurrence: None)
  Receive Date: 20131114
  Receipt Date: 20131114
  Transmission Date: 20140711
  Serious: Yes (Death)
  Sender: FDA-Public Use
  Company Number: None

PATIENT
  Age: 88 Year
  Sex: Male
  Weight: 94 kg

DRUGS (1)
  1. WARFARIN [Suspect]
     Dosage: 5, 7.5 MG, VARIES, QD, ORAL
     Route: 048

REACTIONS (7)
  - Lethargy [None]
  - Asthenia [None]
  - Cellulitis [None]
  - International normalised ratio increased [None]
  - Haematochezia [None]
  - Gastrointestinal haemorrhage [None]
  - Hypovolaemic shock [None]
